FAERS Safety Report 12721676 (Version 1)
Quarter: 2016Q3

REPORT INFORMATION
  Report Type: Spontaneous
  Country: US (occurrence: US)
  Receive Date: 20160907
  Receipt Date: 20160907
  Transmission Date: 20161109
  Serious: No
  Sender: FDA-Public Use
  Company Number: GXBR2016US000981

PATIENT
  Sex: Male

DRUGS (1)
  1. HYDROCORTISONE. [Suspect]
     Active Substance: HYDROCORTISONE
     Indication: FUNGAL TEST POSITIVE
     Dosage: UNK DF, UNK
     Route: 061
     Dates: start: 2014

REACTIONS (3)
  - Laceration [Unknown]
  - Skin irritation [Unknown]
  - Skin atrophy [Unknown]
